FAERS Safety Report 17220321 (Version 1)
Quarter: 2019Q4

REPORT INFORMATION
  Report Type: Spontaneous
  Country: US (occurrence: US)
  Receive Date: 20191231
  Receipt Date: 20191231
  Transmission Date: 20200122
  Serious: Yes (Life-Threatening)
  Sender: FDA-Public Use
  Company Number: NVSC2019US082522

PATIENT
  Age: 50 Year
  Sex: Male

DRUGS (9)
  1. POTASSIUM IODATE [Suspect]
     Active Substance: POTASSIUM IODATE
     Indication: HYPERTHYROIDISM
  2. METAMIZOLE [Suspect]
     Active Substance: METAMIZOLE
     Indication: HYPERTHYROIDISM
     Dosage: 20 MG, TID
     Route: 065
  3. COLESTYRAMINE [Suspect]
     Active Substance: CHOLESTYRAMINE
     Indication: THYROTOXIC CRISIS
     Dosage: 4 G, QID
     Route: 065
  4. COLESTYRAMINE [Suspect]
     Active Substance: CHOLESTYRAMINE
     Dosage: 4 G, BID
     Route: 065
  5. COLESTYRAMINE [Suspect]
     Active Substance: CHOLESTYRAMINE
     Indication: HYPERTHYROIDISM
     Dosage: 4 G, TID
     Route: 065
  6. POTASSIUM IODATE [Suspect]
     Active Substance: POTASSIUM IODATE
     Indication: THYROTOXIC CRISIS
     Dosage: 250 MG, TID
     Route: 065
  7. PROPYLTHIOURACIL. [Suspect]
     Active Substance: PROPYLTHIOURACIL
     Indication: HYPERTHYROIDISM
     Dosage: UNK
     Route: 065
  8. PROPYLTHIOURACIL. [Suspect]
     Active Substance: PROPYLTHIOURACIL
     Indication: THYROTOXIC CRISIS
  9. METAMIZOLE [Suspect]
     Active Substance: METAMIZOLE
     Indication: THYROTOXIC CRISIS
     Dosage: 30 MG, BID
     Route: 065

REACTIONS (2)
  - Multiple organ dysfunction syndrome [Recovered/Resolved]
  - Renal impairment [Recovered/Resolved]
